FAERS Safety Report 6896651-5 (Version None)
Quarter: 2010Q3

REPORT INFORMATION
  Report Type: 
  Country: None (occurrence: None)
  Receive Date: 20100802
  Receipt Date: 20070111
  Transmission Date: 20110219
  Serious: No
  Sender: FDA-Public Use
  Company Number: US-PFIZER INC-2006105407

PATIENT
  Sex: Female
  Weight: 58.97 kg

DRUGS (5)
  1. LYRICA [Suspect]
     Indication: NEURALGIA
     Route: 048
     Dates: start: 20060717
  2. EFFEXOR [Interacting]
  3. TRAZODONE HCL [Interacting]
  4. ZANAFLEX [Interacting]
  5. VOLTAREN [Interacting]

REACTIONS (2)
  - DRUG INTERACTION [None]
  - DRUG SCREEN POSITIVE [None]
